FAERS Safety Report 14871005 (Version 1)
Quarter: 2018Q2

REPORT INFORMATION
  Report Type: Spontaneous
  Country: ZA (occurrence: ZA)
  Receive Date: 20180509
  Receipt Date: 20180509
  Transmission Date: 20180711
  Serious: Yes (Disabling, Other)
  Sender: FDA-Public Use
  Company Number: ZA-GLAXOSMITHKLINE-ZA2018GSK075710

PATIENT
  Sex: Female

DRUGS (1)
  1. LAMICTIN [Suspect]
     Active Substance: LAMOTRIGINE
     Indication: PRODUCT USED FOR UNKNOWN INDICATION
     Dosage: UNK
     Route: 048

REACTIONS (2)
  - Skin disorder [Unknown]
  - Blindness [Unknown]
